FAERS Safety Report 10137820 (Version 1)
Quarter: 2014Q2

REPORT INFORMATION
  Report Type: Spontaneous
  Country: US (occurrence: US)
  Receive Date: 20140429
  Receipt Date: 20140429
  Transmission Date: 20141212
  Serious: No
  Sender: FDA-Public Use
  Company Number: US-MYLANLABS-2013S1005042

PATIENT
  Age: 59 Year
  Sex: Female
  Weight: 63.5 kg

DRUGS (4)
  1. NITROFURANTOIN MONOHYDRATE/MACROCRYSTALS CAPSULES [Suspect]
     Indication: URINARY TRACT INFECTION
     Route: 048
     Dates: start: 20130201, end: 20130208
  2. BENAZEPRIL [Concomitant]
     Indication: BLOOD PRESSURE INCREASED
     Dosage: TAKEN FOR YEARS
     Route: 048
  3. PRAVASTATIN [Concomitant]
     Indication: BLOOD CHOLESTEROL INCREASED
     Dosage: TAKEN FOR YEARS
     Route: 048
  4. AMLODIPINE [Concomitant]
     Indication: BLOOD PRESSURE INCREASED
     Dosage: TAKEN FOR YEARS
     Route: 048

REACTIONS (6)
  - Eye swelling [Not Recovered/Not Resolved]
  - Corneal abrasion [Not Recovered/Not Resolved]
  - Corneal disorder [Not Recovered/Not Resolved]
  - Candida infection [Not Recovered/Not Resolved]
  - Fungal infection [Not Recovered/Not Resolved]
  - Hypoaesthesia [Recovering/Resolving]
